FAERS Safety Report 15988335 (Version 1)
Quarter: 2019Q1

REPORT INFORMATION
  Report Type: Report from Study
  Country: None (occurrence: IL)
  Receive Date: 20190221
  Receipt Date: 20190221
  Transmission Date: 20190418
  Serious: Yes (Other)
  Sender: FDA-Public Use
  Company Number: IL-ABBVIE-19S-082-2673346-00

PATIENT
  Age: 70 Year
  Sex: Female

DRUGS (2)
  1. DUODOPA [Suspect]
     Active Substance: CARBIDOPA\LEVODOPA
     Indication: PARKINSON^S DISEASE
     Dosage: CURRENT MD 8ML, CURRENT FIXED RATE- 4 ML/ HOUR, CURRENT ED-1.5 ML
     Route: 050
     Dates: start: 20180321
  2. DUODOPA [Suspect]
     Active Substance: CARBIDOPA\LEVODOPA
     Dosage: CURRENT FIXED RATE- 4.3 ML/ HOUR
     Route: 050

REACTIONS (2)
  - Breast cancer [Unknown]
  - On and off phenomenon [Unknown]

NARRATIVE: CASE EVENT DATE: 201901
